FAERS Safety Report 5044590-7 (Version None)
Quarter: 2006Q2

REPORT INFORMATION
  Report Type: 
  Country: None (occurrence: None)
  Receive Date: 20060629
  Receipt Date: 20060613
  Transmission Date: 20061013
  Serious: Yes (Hospitalization)
  Sender: FDA-Public Use
  Company Number: 35167

PATIENT
  Age: 35 Month
  Sex: Female

DRUGS (1)
  1. TOBRAMYCIN [Suspect]
     Indication: CONJUNCTIVITIS
     Dosage: OPHT
     Route: 047
     Dates: start: 20060611, end: 20060612

REACTIONS (10)
  - CONJUNCTIVAL DEGENERATION [None]
  - CONJUNCTIVAL ULCER [None]
  - CORNEAL EPITHELIUM DEFECT [None]
  - CORNEAL EPITHELIUM DISORDER [None]
  - CORNEAL OPACITY [None]
  - EYELID DISORDER [None]
  - INJURY CORNEAL [None]
  - ISCHAEMIA [None]
  - OEDEMA [None]
  - SKIN MACERATION [None]
